FAERS Safety Report 21068978 (Version 1)
Quarter: 2022Q3

REPORT INFORMATION
  Report Type: Spontaneous
  Country: US (occurrence: None)
  Receive Date: 20220711
  Receipt Date: 20220711
  Transmission Date: 20221027
  Serious: No
  Sender: FDA-Public Use
  Company Number: None

PATIENT
  Age: 10 Month
  Sex: Female
  Weight: 6 kg

DRUGS (1)
  1. HEMANGEOL [Suspect]
     Active Substance: PROPRANOLOL HYDROCHLORIDE
     Indication: Haemangioma
     Dosage: 2ML TWICE A DAY ORAL
     Route: 048
     Dates: start: 20211103, end: 20220707

REACTIONS (2)
  - Insomnia [None]
  - Therapy interrupted [None]

NARRATIVE: CASE EVENT DATE: 20220711
